FAERS Safety Report 9888712 (Version 1)
Quarter: 2014Q1

REPORT INFORMATION
  Report Type: Spontaneous
  Country: US (occurrence: None)
  Receive Date: 20140210
  Receipt Date: 20140210
  Transmission Date: 20141002
  Serious: Yes (Disabling)
  Sender: FDA-Public Use
  Company Number: None

PATIENT
  Age: 54 Year
  Sex: Male
  Weight: 120.2 kg

DRUGS (1)
  1. BUSPIRONE [Suspect]
     Indication: ANXIETY
     Dosage: 1 X 15 MG PILL TWICE DAILY TAKEN BY MOUTH
     Route: 048
     Dates: start: 20140108, end: 20140122

REACTIONS (4)
  - Tinnitus [None]
  - Dizziness [None]
  - Gingival pain [None]
  - Tooth abscess [None]
